FAERS Safety Report 9759189 (Version 1)
Quarter: 2013Q4

REPORT INFORMATION
  Report Type: Spontaneous
  Country: TR (occurrence: TR)
  Receive Date: 20131216
  Receipt Date: 20131216
  Transmission Date: 20140711
  Serious: Yes (Congenital Anomaly)
  Sender: FDA-Public Use
  Company Number: TR-MYLANLABS-2013S1027271

PATIENT
  Sex: Male
  Weight: 3.12 kg

DRUGS (1)
  1. ISOTRETINOIN [Suspect]
     Indication: ACNE CYSTIC
     Dosage: 20 MG/DAY
     Route: 064

REACTIONS (6)
  - Facial asymmetry [Unknown]
  - Foetal exposure during pregnancy [Unknown]
  - Anomaly of external ear congenital [Unknown]
  - Congenital aortic anomaly [Unknown]
  - Anomalous pulmonary venous connection [Unknown]
  - Atrioventricular septal defect [Unknown]
